FAERS Safety Report 5756814-9 (Version None)
Quarter: 2008Q2

REPORT INFORMATION
  Report Type: 
  Country: None (occurrence: None)
  Receive Date: 20080529
  Receipt Date: 20080514
  Transmission Date: 20081010
  Serious: Yes (Other)
  Sender: FDA-Public Use
  Company Number: 239084K07USA

PATIENT
  Age: 63 Year
  Sex: Female
  Weight: 75.7507 kg

DRUGS (19)
  1. REBIF [Suspect]
     Indication: MULTIPLE SCLEROSIS
     Dosage: SEE IMAGE
     Route: 058
     Dates: start: 20060111, end: 20070101
  2. REBIF [Suspect]
     Indication: MULTIPLE SCLEROSIS
     Dosage: SEE IMAGE
     Route: 058
     Dates: start: 20070101, end: 20070101
  3. REBIF [Suspect]
     Indication: MULTIPLE SCLEROSIS
     Dosage: SEE IMAGE
     Route: 058
     Dates: start: 20070101, end: 20080101
  4. REBIF [Suspect]
     Indication: MULTIPLE SCLEROSIS
     Dosage: SEE IMAGE
     Route: 058
     Dates: start: 20080101, end: 20080101
  5. REBIF [Suspect]
     Indication: MULTIPLE SCLEROSIS
     Dosage: SEE IMAGE
     Route: 058
     Dates: start: 20080101
  6. LIPITOR [Suspect]
     Dates: start: 20060920, end: 20070101
  7. ZETIA [Suspect]
     Dosage: 10 MG, 1 IN 1 DAYS, NOT REPORTED
     Dates: start: 20060920
  8. ASPIRIN [Concomitant]
  9. ATACAND-HCT (BLOPRESS PLUS) [Concomitant]
  10. B COMPLEX (NICOTINAM. W/PYRIDOXI. HCL/RIBOFL./THIAM. HCL) [Concomitant]
  11. CALCIUM [Concomitant]
  12. FISH OIL [Concomitant]
  13. FOSAMAX PLUS D [Concomitant]
  14. GLUCOSAMINE [Concomitant]
  15. IBUPROFEN TABLETS [Concomitant]
  16. MILK THISTLE  (ALL OTHER THERAPEUTIC PRODUCTS) [Concomitant]
  17. OMEPRAZOLE [Concomitant]
  18. TRI-EST EITH PROGESTERONE (ALL OTHER THERAPEUTIC PRODUCTS) [Concomitant]
  19. VITAMINS D (ERGOCALCIFEROL) [Concomitant]

REACTIONS (4)
  - BLOOD IRON INCREASED [None]
  - GASTROINTESTINAL DISORDER [None]
  - HEPATIC STEATOSIS [None]
  - SERUM FERRITIN INCREASED [None]
